FAERS Safety Report 6210551-5 (Version None)
Quarter: 2009Q2

REPORT INFORMATION
  Report Type: 
  Country: None (occurrence: None)
  Receive Date: 20090601
  Receipt Date: 20090524
  Transmission Date: 20091009
  Serious: Yes (Other)
  Sender: FDA-Public Use
  Company Number: A0787509A

PATIENT
  Sex: Female

DRUGS (1)
  1. LAMICTAL [Suspect]
     Indication: BIPOLAR II DISORDER
     Dosage: 100MGD PER DAY
     Route: 048

REACTIONS (9)
  - ANAL PRURITUS [None]
  - ASTHENIA [None]
  - CRYING [None]
  - DEPRESSION [None]
  - DIZZINESS [None]
  - HEADACHE [None]
  - PSORIASIS [None]
  - RASH [None]
  - VULVOVAGINAL PRURITUS [None]
